FAERS Safety Report 17887154 (Version 1)
Quarter: 2020Q2

REPORT INFORMATION
  Report Type: Spontaneous
  Country: ES (occurrence: ES)
  Receive Date: 20200612
  Receipt Date: 20200612
  Transmission Date: 20200714
  Serious: Yes (Hospitalization)
  Sender: FDA-Public Use
  Company Number: ES-TEVA-2020-ES-1246768

PATIENT
  Age: 86 Year
  Sex: Male

DRUGS (1)
  1. PREDNISONA [Suspect]
     Active Substance: PREDNISONE
     Indication: MYALGIA
     Dosage: 20 MILLIGRAM DAILY;  PROGRESSIVE DOSE REDUCTION FROM 5/22 TO 5/28 DISCONTINUATION
     Route: 048
     Dates: start: 20200514, end: 20200528

REACTIONS (2)
  - Hyperglycaemia [Recovering/Resolving]
  - Hyperglycaemic hyperosmolar nonketotic syndrome [Recovering/Resolving]

NARRATIVE: CASE EVENT DATE: 20200517
